FAERS Safety Report 7632302-X (Version None)
Quarter: 2011Q3

REPORT INFORMATION
  Report Type: 
  Country: None (occurrence: None)
  Receive Date: 20110725
  Receipt Date: 20100721
  Transmission Date: 20111222
  Serious: No
  Sender: FDA-Public Use
  Company Number: US-BRISTOL-MYERS SQUIBB COMPANY-15204035

PATIENT
  Age: 79 Year
  Sex: Female

DRUGS (2)
  1. COUMADIN [Suspect]
  2. ENOXAPARIN SODIUM [Suspect]
     Indication: THROMBOSIS PROPHYLAXIS
     Dosage: 10 PLANNED DOSES,9DOSES=13JUN2010.STOPEDMAY2010,RESTARTED ON JUN2010
     Dates: start: 20100501, end: 20100613

REACTIONS (3)
  - INTERNATIONAL NORMALISED RATIO FLUCTUATION [None]
  - PRURITUS [None]
  - URTICARIA [None]
